FAERS Safety Report 23545326 (Version 1)
Quarter: 2024Q1

REPORT INFORMATION
  Report Type: Spontaneous
  Country: JP (occurrence: JP)
  Receive Date: 20240220
  Receipt Date: 20240220
  Transmission Date: 20240410
  Serious: Yes (Other)
  Sender: FDA-Public Use
  Company Number: JP-PFIZER INC-PV202400021765

PATIENT
  Sex: Male

DRUGS (4)
  1. CLINDAMYCIN HYDROCHLORIDE [Suspect]
     Active Substance: CLINDAMYCIN HYDROCHLORIDE
     Dosage: UNK
     Route: 048
     Dates: start: 20231228, end: 20240103
  2. LOXOPROFEN SODIUM [Concomitant]
     Active Substance: LOXOPROFEN SODIUM
     Dosage: UNK
     Route: 048
     Dates: start: 20231228, end: 20240103
  3. AMOXICILLIN [Concomitant]
     Active Substance: AMOXICILLIN
     Dosage: UNK
  4. TOSUFLOXACIN [Concomitant]
     Active Substance: TOSUFLOXACIN
     Dosage: UNK

REACTIONS (14)
  - Sarcoidosis [Unknown]
  - Drug reaction with eosinophilia and systemic symptoms [Unknown]
  - Cellulitis [Unknown]
  - Hypoaesthesia [Unknown]
  - Lymphadenopathy [Not Recovered/Not Resolved]
  - Pyrexia [Unknown]
  - Dysuria [Unknown]
  - Malaise [Unknown]
  - Chest pain [Not Recovered/Not Resolved]
  - Immune system disorder [Unknown]
  - Lymph node pain [Unknown]
  - Alopecia [Unknown]
  - Cystitis [Unknown]
  - Insomnia [Unknown]

NARRATIVE: CASE EVENT DATE: 20240106
